FAERS Safety Report 5958875-0 (Version None)
Quarter: 2008Q4

REPORT INFORMATION
  Report Type: 
  Country: None (occurrence: None)
  Receive Date: 20081119
  Receipt Date: 20081111
  Transmission Date: 20090506
  Serious: Yes (Death)
  Sender: FDA-Public Use
  Company Number: US-GILEAD-2008-0018936

PATIENT
  Sex: Female
  Weight: 56.75 kg

DRUGS (7)
  1. LETAIRIS [Suspect]
     Indication: PULMONARY ARTERIAL HYPERTENSION
     Route: 048
     Dates: start: 20080625
  2. DILTIAZEM HCL [Concomitant]
  3. TOPROL-XL [Concomitant]
  4. PREDNISONE TAB [Concomitant]
  5. SYNTHROID [Concomitant]
  6. AMBIEN [Concomitant]
  7. NEXIUM [Concomitant]

REACTIONS (1)
  - DEATH [None]
